FAERS Safety Report 21640133 (Version 1)
Quarter: 2022Q4

REPORT INFORMATION
  Report Type: Spontaneous
  Country: US (occurrence: US)
  Receive Date: 20221124
  Receipt Date: 20221124
  Transmission Date: 20230113
  Serious: Yes (Other)
  Sender: FDA-Public Use
  Company Number: US-ALLERGAN-2238835US

PATIENT
  Sex: Female

DRUGS (2)
  1. PREDNISOLONE [Suspect]
     Active Substance: PREDNISOLONE
     Indication: Keratitis viral
     Dosage: 1 DF, QD
  2. VALACYCLOVIR [Concomitant]
     Active Substance: VALACYCLOVIR HYDROCHLORIDE
     Indication: Keratitis viral

REACTIONS (3)
  - Ophthalmic herpes simplex [Recovered/Resolved]
  - Granulicatella infection [Recovered/Resolved]
  - Contraindicated product administered [Unknown]
